FAERS Safety Report 17953240 (Version 1)
Quarter: 2020Q2

REPORT INFORMATION
  Report Type: Spontaneous
  Country: BR (occurrence: BR)
  Receive Date: 20200627
  Receipt Date: 20200627
  Transmission Date: 20200714
  Serious: Yes (Other)
  Sender: FDA-Public Use
  Company Number: NVSC2020BR180212

PATIENT
  Age: 52 Year
  Sex: Male

DRUGS (3)
  1. AZITHROMYCIN ANHYDROUS. [Suspect]
     Active Substance: AZITHROMYCIN ANHYDROUS
     Indication: PSORIASIS
     Dosage: 500 MG (FOR 5 DAYS)
     Route: 065
  2. SECUKINUMAB. [Suspect]
     Active Substance: SECUKINUMAB
     Indication: PSORIASIS
     Dosage: UNK (3 YEARS AGO)
     Route: 065
  3. IVERMECTIN. [Concomitant]
     Active Substance: IVERMECTIN
     Indication: PRODUCT USED FOR UNKNOWN INDICATION
     Dosage: 3 TABLETS-SINGLE DOSE
     Route: 065

REACTIONS (4)
  - Pyrexia [Unknown]
  - COVID-19 [Unknown]
  - Asthenia [Unknown]
  - Cough [Not Recovered/Not Resolved]
